FAERS Safety Report 7866598 (Version 3)
Quarter: 2015Q4

REPORT INFORMATION
  Report Type: Spontaneous
  Country: US (occurrence: US)
  Receive Date: 20110322
  Receipt Date: 20151124
  Transmission Date: 20160305
  Serious: Yes (Other)
  Sender: FDA-Public Use
  Company Number: US-BAYER-2011-022586

PATIENT
  Age: 34 Year
  Sex: Female
  Weight: 63.49 kg

DRUGS (2)
  1. NEXIUM [Concomitant]
     Active Substance: ESOMEPRAZOLE MAGNESIUM
  2. YAZ [Suspect]
     Active Substance: DROSPIRENONE\ETHINYL ESTRADIOL
     Indication: ACNE
     Dosage: UNK
     Route: 048
     Dates: start: 200803, end: 200909

REACTIONS (12)
  - Ear discomfort [None]
  - Dizziness [None]
  - Dyspnoea [None]
  - Embolism arterial [None]
  - Confusional state [None]
  - Visual impairment [None]
  - Dysphagia [None]
  - Palpitations [None]
  - Memory impairment [None]
  - Arrhythmia [None]
  - Paraesthesia [None]
  - Disturbance in attention [None]

NARRATIVE: CASE EVENT DATE: 200909
